FAERS Safety Report 6220796-6 (Version None)
Quarter: 2009Q2

REPORT INFORMATION
  Report Type: 
  Country: None (occurrence: None)
  Receive Date: 20090610
  Receipt Date: 20090529
  Transmission Date: 20091009
  Serious: Yes (Hospitalization)
  Sender: FDA-Public Use
  Company Number: FR-BAYER-200922412GPV

PATIENT
  Age: 18 Year
  Sex: Female

DRUGS (1)
  1. YASMIN [Suspect]
     Indication: DRUG USE FOR UNKNOWN INDICATION
     Dosage: 21 DAYS / 28 DAYS
     Route: 048
     Dates: start: 20080801, end: 20081221

REACTIONS (2)
  - ANGIOEDEMA [None]
  - HEREDITARY ANGIOEDEMA [None]
